FAERS Safety Report 6166528 (Version 5)
Quarter: 2019Q1

REPORT INFORMATION
  Report Type: Spontaneous
  Country: DE (occurrence: FR)
  Receive Date: 20061113
  Receipt Date: 20190125
  Transmission Date: 20190418
  Serious: Yes (Hospitalization, Other)
  Sender: FDA-Public Use
  Company Number: FR-GLAXOSMITHKLINE-B0446208A

PATIENT
  Age: 86 Year
  Sex: Male

DRUGS (16)
  1. CIFLOX [Suspect]
     Active Substance: CIPROFLOXACIN
     Indication: URINARY TRACT INFECTION
     Dosage: UNK
     Route: 048
     Dates: start: 20060731, end: 20060804
  2. MOTILIUM [Suspect]
     Active Substance: DOMPERIDONE
     Indication: NAUSEA
     Dosage: UNK
     Route: 048
     Dates: start: 20060731, end: 20060807
  3. ZOMETA [Suspect]
     Active Substance: ZOLEDRONIC ACID
     Indication: UNEVALUABLE EVENT
     Dosage: UNK
     Route: 042
     Dates: start: 20060802, end: 20060802
  4. MOTILIUM [Suspect]
     Active Substance: DOMPERIDONE
     Indication: AGGRESSION
  5. EQUANIL [Concomitant]
     Active Substance: MEPROBAMATE
     Indication: AGGRESSION
     Dates: end: 20060807
  6. DEDROGYL [Concomitant]
     Active Substance: CALCIFEDIOL
     Dates: start: 20060823
  7. MOTILIUM [Suspect]
     Active Substance: DOMPERIDONE
     Indication: VOMITING
  8. PREVISCAN (FLUINDIONE) [Suspect]
     Active Substance: FLUINDIONE
     Indication: CEREBRAL ARTERY EMBOLISM
     Dosage: UNK
     Route: 048
     Dates: start: 20060802, end: 20060807
  9. AUGMENTIN [Suspect]
     Active Substance: AMOXICILLIN\CLAVULANATE POTASSIUM
     Indication: URINARY TRACT INFECTION
     Route: 048
     Dates: start: 20060731, end: 20060804
  10. REMINYL [Concomitant]
     Active Substance: GALANTAMINE
     Indication: PRESENILE DEMENTIA
  11. RENITEC [Concomitant]
     Active Substance: ENALAPRIL MALEATE
     Indication: PRODUCT USED FOR UNKNOWN INDICATION
  12. TENORMINE [Concomitant]
     Active Substance: ATENOLOL
     Indication: UNEVALUABLE EVENT
     Dates: end: 20060807
  13. OSTRAM [Concomitant]
     Active Substance: CALCIUM PHOSPHATE
     Indication: PRODUCT USED FOR UNKNOWN INDICATION
  14. CONTRAMAL [Concomitant]
     Active Substance: TRAMADOL HYDROCHLORIDE
     Indication: PRODUCT USED FOR UNKNOWN INDICATION
     Dates: end: 20060807
  15. REMINYL [Concomitant]
     Active Substance: GALANTAMINE
     Indication: AGGRESSION
     Route: 048
     Dates: start: 20060731
  16. INEXIUM [Concomitant]
     Active Substance: ESOMEPRAZOLE
     Indication: PRODUCT USED FOR UNKNOWN INDICATION
     Dates: end: 20060807

REACTIONS (6)
  - Eosinophilia [Unknown]
  - Vision blurred [Unknown]
  - Transient ischaemic attack [Unknown]
  - Flushing [Unknown]
  - Pyrexia [Unknown]
  - Rash [Recovered/Resolved]

NARRATIVE: CASE EVENT DATE: 20060802
